FAERS Safety Report 4642220-7 (Version None)
Quarter: 2005Q2

REPORT INFORMATION
  Report Type: 
  Country: None (occurrence: None)
  Receive Date: 20050420
  Receipt Date: 20050405
  Transmission Date: 20051028
  Serious: Yes (Hospitalization)
  Sender: FDA-Public Use
  Company Number: DSA_26240_2005

PATIENT
  Age: 35 Year
  Sex: Female

DRUGS (2)
  1. TAVOR [Suspect]
     Dosage: 30 MCG ONCE PO
     Route: 048
     Dates: start: 20050331, end: 20050331
  2. ALCOHOL [Suspect]
     Dates: start: 20050331, end: 20050331

REACTIONS (3)
  - INTENTIONAL MISUSE [None]
  - TACHYCARDIA [None]
  - VOMITING [None]
